FAERS Safety Report 5395177-8 (Version None)
Quarter: 2007Q3

REPORT INFORMATION
  Report Type: 
  Country: None (occurrence: None)
  Receive Date: 20070713
  Receipt Date: 20070326
  Transmission Date: 20080115
  Serious: Yes (Life-Threatening, Hospitalization, Other)
  Sender: FDA-Public Use
  Company Number: US-JNJFOC-20061206798

PATIENT
  Age: 34 Year
  Sex: Female
  Weight: 114.3065 kg

DRUGS (3)
  1. ORTHO EVRA [Suspect]
     Indication: CONTRACEPTION
     Dosage: TRANSDERMAL
     Route: 062
     Dates: start: 20010101, end: 20050804
  2. RELPAX (ELETRIPTAN HYDROBROMIDE) [Concomitant]
  3. WELLBUTRIN XL (UBPROPION HYDROCHLORIDE) [Concomitant]

REACTIONS (1)
  - PULMONARY EMBOLISM [None]
